FAERS Safety Report 5490517-3 (Version None)
Quarter: 2007Q4

REPORT INFORMATION
  Report Type: 
  Country: None (occurrence: None)
  Receive Date: 20071018
  Receipt Date: 20071018
  Transmission Date: 20080405
  Serious: Yes (Other)
  Sender: FDA-Public Use
  Company Number: None

PATIENT
  Age: 33 Year
  Sex: Female
  Weight: 64.8644 kg

DRUGS (7)
  1. AVONEX [Suspect]
     Indication: MULTIPLE SCLEROSIS
     Dosage: 30MCG IM Q WK
     Route: 030
  2. EFFEXOR [Concomitant]
  3. SYNTHROID [Concomitant]
  4. ESTRACE [Concomitant]
  5. PROVIGIL [Concomitant]
  6. CARAFATE [Concomitant]
  7. NEXIUM [Concomitant]

REACTIONS (4)
  - DEPRESSION [None]
  - DISEASE PROGRESSION [None]
  - HEPATIC STEATOSIS [None]
  - MULTIPLE SCLEROSIS [None]
